FAERS Safety Report 7823266-4 (Version None)
Quarter: 2011Q4

REPORT INFORMATION
  Report Type: 
  Country: None (occurrence: None)
  Receive Date: 20111013
  Receipt Date: 20110929
  Transmission Date: 20120403
  Serious: Yes (Hospitalization)
  Sender: FDA-Public Use
  Company Number: 2011-4010

PATIENT
  Age: 47 Year
  Sex: Female

DRUGS (2)
  1. SOMATULINE AUTOGEL 60 MG (SOMATULINE SR) (LANREOTIDE) (LANREOTIDE ACET [Suspect]
     Indication: PRODUCT USED FOR UNKNOWN INDICATION
     Dosage: 60 MG (60 MG, 1 IN 45 D), SUBCUTANEOUS
     Route: 058
     Dates: start: 20080101
  2. LANTUS [Concomitant]

REACTIONS (1)
  - WEGENER'S GRANULOMATOSIS [None]
